FAERS Safety Report 16311153 (Version 2)
Quarter: 2019Q2

REPORT INFORMATION
  Report Type: Spontaneous
  Country: US (occurrence: US)
  Receive Date: 20190514
  Receipt Date: 20190603
  Transmission Date: 20190711
  Serious: Yes (Other)
  Sender: FDA-Public Use
  Company Number: US-MTPC-MTDA2019-0051100

PATIENT

DRUGS (1)
  1. RADICAVA [Suspect]
     Active Substance: EDARAVONE
     Indication: AMYOTROPHIC LATERAL SCLEROSIS
     Dosage: 60 MILLIGRAM, QD FOR 10 OUT OF 14 DAYS WITH 14 DAYS OFF
     Route: 042
     Dates: start: 201807

REACTIONS (10)
  - Disease progression [Unknown]
  - Flushing [Unknown]
  - Respiratory symptom [Unknown]
  - Gait disturbance [Unknown]
  - Asthenia [Unknown]
  - Gastrostomy [Unknown]
  - Fatigue [Recovered/Resolved]
  - Dermatitis contact [Unknown]
  - Eating disorder [Unknown]
  - Hot flush [Unknown]

NARRATIVE: CASE EVENT DATE: 201808
